FAERS Safety Report 18295735 (Version 1)
Quarter: 2020Q3

REPORT INFORMATION
  Report Type: Spontaneous
  Country: US (occurrence: US)
  Receive Date: 20200922
  Receipt Date: 20200922
  Transmission Date: 20201103
  Serious: No
  Sender: FDA-Public Use
  Company Number: US-AMARIN PHARMA, INC.-2020AMR000423

PATIENT
  Age: 73 Year
  Sex: Male
  Weight: 88.53 kg

DRUGS (2)
  1. VASCEPA [Suspect]
     Active Substance: ICOSAPENT ETHYL
     Indication: BLOOD TRIGLYCERIDES INCREASED
     Route: 048
     Dates: start: 2016
  2. METFORMIN [Concomitant]
     Active Substance: METFORMIN HYDROCHLORIDE
     Indication: TYPE 2 DIABETES MELLITUS
     Route: 048
     Dates: start: 2017

REACTIONS (5)
  - Dyspepsia [Unknown]
  - Myalgia [Unknown]
  - Product taste abnormal [Unknown]
  - Eructation [Unknown]
  - Dysgeusia [Unknown]

NARRATIVE: CASE EVENT DATE: 202004
